FAERS Safety Report 12332729 (Version 2)
Quarter: 2016Q2

REPORT INFORMATION
  Report Type: Spontaneous
  Country: AU (occurrence: AU)
  Receive Date: 20160504
  Receipt Date: 20160630
  Transmission Date: 20160815
  Serious: Yes (Other)
  Sender: FDA-Public Use
  Company Number: AU-PFIZER INC-2016224178

PATIENT
  Age: 69 Year
  Sex: Male

DRUGS (4)
  1. DACARBAZINE. [Suspect]
     Active Substance: DACARBAZINE
     Indication: HODGKIN^S DISEASE STAGE IV
     Dosage: UNK, CYCLIC (28 DAY CYCLES AND INFUSIONS ON DAYS 1 AND 15 OF EACH CYCLE)
     Route: 042
  2. VINBLASTINE [Suspect]
     Active Substance: VINBLASTINE
     Indication: HODGKIN^S DISEASE STAGE IV
     Dosage: UNK, CYCLIC (28 DAY CYCLES AND INFUSIONS ON DAYS 1 AND 15 OF EACH CYCLE)
     Route: 042
  3. BLEOMYCIN SULFATE [Suspect]
     Active Substance: BLEOMYCIN SULFATE
     Indication: HODGKIN^S DISEASE STAGE IV
     Dosage: UNK, CYCLIC (28 DAY CYCLES AND INFUSIONS ON DAYS 1 AND 15 OF EACH CYCLE)
     Route: 042
  4. DOXORUBICIN HCL [Suspect]
     Active Substance: DOXORUBICIN HYDROCHLORIDE
     Indication: HODGKIN^S DISEASE STAGE IV
     Dosage: UNK, CYCLIC (28 DAY CYCLES AND INFUSIONS ON DAYS 1 AND 15 OF EACH CYCLE)
     Route: 042

REACTIONS (2)
  - Weight decreased [Unknown]
  - Immunodeficiency [Unknown]
